FAERS Safety Report 8537160-7 (Version None)
Quarter: 2012Q3

REPORT INFORMATION
  Report Type: 
  Country: None (occurrence: None)
  Receive Date: 20120725
  Receipt Date: 20120713
  Transmission Date: 20120928
  Serious: Yes (Hospitalization, Other)
  Sender: FDA-Public Use
  Company Number: BR-BRISTOL-MYERS SQUIBB COMPANY-16777880

PATIENT
  Age: 51 Year
  Sex: Male
  Weight: 103 kg

DRUGS (4)
  1. DOXORUBICIN HYDROCHLORIDE [Suspect]
     Indication: ADRENAL CARCINOMA
     Dates: start: 20110101
  2. LISODREN TABS 500 MG [Suspect]
     Indication: ADRENAL CARCINOMA
     Dosage: STARTED 500MG, INCREASED TO 1GM, INTERR OCT09 RESTART JUN11 AT 2G-INCREASED TO 4G
     Route: 048
  3. CISPLATIN [Suspect]
     Indication: ADRENAL CARCINOMA
     Dates: start: 20110101
  4. ETOPOSIDE [Suspect]
     Indication: ADRENAL CARCINOMA
     Dates: start: 20110101

REACTIONS (7)
  - HEADACHE [None]
  - GASTROINTESTINAL TOXICITY [None]
  - NEOPLASM MALIGNANT [None]
  - IMMUNODEFICIENCY [None]
  - PYREXIA [None]
  - NEUROTOXICITY [None]
  - DYSENTERY [None]
